FAERS Safety Report 4451029-9 (Version None)
Quarter: 2004Q3

REPORT INFORMATION
  Report Type: 
  Country: None (occurrence: None)
  Receive Date: 20040916
  Receipt Date: 20040726
  Transmission Date: 20050211
  Serious: No
  Sender: FDA-Public Use
  Company Number: US-BRISTOL-MYERS SQUIBB COMPANY-12651105

PATIENT
  Age: 81 Year
  Sex: Female
  Weight: 91 kg

DRUGS (4)
  1. STADOL [Suspect]
     Indication: PAIN PROPHYLAXIS
  2. PHENERGAN HCL [Concomitant]
  3. MINIPRESS [Concomitant]
  4. ATENOLOL [Concomitant]

REACTIONS (2)
  - INJECTION SITE ERYTHEMA [None]
  - INJECTION SITE PAIN [None]
